FAERS Safety Report 17647278 (Version 1)
Quarter: 2020Q2

REPORT INFORMATION
  Report Type: Spontaneous
  Country: US (occurrence: US)
  Receive Date: 20200408
  Receipt Date: 20200408
  Transmission Date: 20200713
  Serious: No
  Sender: FDA-Public Use
  Company Number: US-OPTINOSE US, INC-2019OPT000469

PATIENT
  Age: 51 Year
  Sex: Male
  Weight: 112.2 kg

DRUGS (4)
  1. XHANCE [Suspect]
     Active Substance: FLUTICASONE PROPIONATE
  2. XHANCE [Suspect]
     Active Substance: FLUTICASONE PROPIONATE
  3. SINGULAIR [Concomitant]
     Active Substance: MONTELUKAST SODIUM
     Dosage: UNK
     Dates: start: 2015
  4. XHANCE [Suspect]
     Active Substance: FLUTICASONE PROPIONATE
     Dosage: 372 UG, BID (2 SPRAYS EACH NOSTRIL BID)
     Route: 045
     Dates: start: 20180618

REACTIONS (3)
  - Product dose omission [Unknown]
  - Device issue [Unknown]
  - No adverse event [Unknown]

NARRATIVE: CASE EVENT DATE: 201807
